FAERS Safety Report 22219345 (Version 1)
Quarter: 2023Q2

REPORT INFORMATION
  Report Type: Spontaneous
  Country: US (occurrence: None)
  Receive Date: 20230416
  Receipt Date: 20230416
  Transmission Date: 20230722
  Serious: Yes (Other)
  Sender: FDA-Public Use
  Company Number: None

PATIENT
  Age: 49 Year
  Sex: Male
  Weight: 117 kg

DRUGS (6)
  1. CIPROFLOXACIN [Suspect]
     Active Substance: CIPROFLOXACIN
     Indication: Eye infection bacterial
     Dosage: OTHER QUANTITY : 2 DROP(S);?FREQUENCY : 4 TIMES A DAY;?
     Route: 047
     Dates: start: 20230415, end: 20230415
  2. TESTOSTERONE [Concomitant]
     Active Substance: TESTOSTERONE
  3. ADDERALL [Concomitant]
     Active Substance: AMPHETAMINE ASPARTATE\AMPHETAMINE SULFATE\DEXTROAMPHETAMINE SACCHARATE\DEXTROAMPHETAMINE SULFATE
  4. SYNTHROID [Concomitant]
  5. IRON [Concomitant]
     Active Substance: IRON
  6. VITAMIN D3 [Concomitant]
     Active Substance: CHOLECALCIFEROL

REACTIONS (7)
  - Instillation site irritation [None]
  - Instillation site erythema [None]
  - Corneal oedema [None]
  - Eye discharge [None]
  - Swelling of eyelid [None]
  - Eyelid ptosis [None]
  - Eyelid margin crusting [None]

NARRATIVE: CASE EVENT DATE: 20230415
